FAERS Safety Report 19171492 (Version 2)
Quarter: 2021Q2

REPORT INFORMATION
  Report Type: Spontaneous
  Country: US (occurrence: US)
  Receive Date: 20210423
  Receipt Date: 20210603
  Transmission Date: 20210717
  Serious: No
  Sender: FDA-Public Use
  Company Number: US-ASTRAZENECA-2021A249169

PATIENT
  Age: 22176 Day
  Sex: Female
  Weight: 101.1 kg

DRUGS (1)
  1. BYDUREON BCISE [Suspect]
     Active Substance: EXENATIDE
     Indication: DIABETES MELLITUS
     Route: 058
     Dates: start: 20210319

REACTIONS (5)
  - Visual impairment [Not Recovered/Not Resolved]
  - Device delivery system issue [Unknown]
  - Drug hypersensitivity [Not Recovered/Not Resolved]
  - Injection site pruritus [Recovering/Resolving]
  - Injection site pain [Recovering/Resolving]

NARRATIVE: CASE EVENT DATE: 20210319
